FAERS Safety Report 11823576 (Version 2)
Quarter: 2015Q4

REPORT INFORMATION
  Report Type: Spontaneous
  Country: DE (occurrence: DE)
  Receive Date: 20151210
  Receipt Date: 20151216
  Transmission Date: 20160305
  Serious: Yes (Hospitalization)
  Sender: FDA-Public Use
  Company Number: DE-LINDE GAS NORTH AMERICA LLC-DE-LHC-2015162

PATIENT
  Sex: Male

DRUGS (1)
  1. CONOXIA [Suspect]
     Active Substance: OXYGEN
     Indication: PRODUCT USED FOR UNKNOWN INDICATION

REACTIONS (5)
  - Malaise [Unknown]
  - Overdose [Unknown]
  - Sepsis [Unknown]
  - Presyncope [Unknown]
  - Blood disorder [Unknown]

NARRATIVE: CASE EVENT DATE: 20151126
